FAERS Safety Report 16112012 (Version 1)
Quarter: 2019Q1

REPORT INFORMATION
  Report Type: Spontaneous
  Country: US (occurrence: US)
  Receive Date: 20190220
  Receipt Date: 20190220
  Transmission Date: 20190418
  Serious: Yes (Hospitalization)
  Sender: FDA-Public Use
  Company Number: None

PATIENT
  Age: 69 Year
  Sex: Male
  Weight: 65 kg

DRUGS (1)
  1. VANCOMYCIN [Suspect]
     Active Substance: VANCOMYCIN
     Indication: SURGERY
     Route: 042
     Dates: start: 20190129, end: 20190129

REACTIONS (11)
  - Vision blurred [None]
  - Pruritus [None]
  - Mental status changes [None]
  - Tachycardia [None]
  - Confusional state [None]
  - Chills [None]
  - Unresponsive to stimuli [None]
  - Infusion related reaction [None]
  - Incorrect drug administration rate [None]
  - Hypotension [None]
  - Hyperhidrosis [None]

NARRATIVE: CASE EVENT DATE: 20190129
